FAERS Safety Report 17249242 (Version 6)
Quarter: 2020Q2

REPORT INFORMATION
  Report Type: Spontaneous
  Country: US (occurrence: US)
  Receive Date: 20200108
  Receipt Date: 20200519
  Transmission Date: 20200713
  Serious: Yes (Other)
  Sender: FDA-Public Use
  Company Number: US-PFIZER INC-2019238563

PATIENT
  Age: 48 Year
  Sex: Male

DRUGS (5)
  1. DILANTIN [Suspect]
     Active Substance: PHENYTOIN
     Dosage: UNK, 4X/DAY
  2. DILANTIN [Suspect]
     Active Substance: PHENYTOIN
     Dosage: 30 MG, 3X/DAY
     Route: 048
  3. DILANTIN [Suspect]
     Active Substance: PHENYTOIN
     Dosage: 160 MG, 2X/DAY (160MG ONCE IN MORNING ONCE IN EVENING)
  4. DILANTIN [Suspect]
     Active Substance: PHENYTOIN
     Indication: CEREBRAL INFARCTION
     Dosage: 500 MG, DAILY (2 CAPS AM AND 3 CAPS PM)
     Route: 048
  5. DILANTIN [Suspect]
     Active Substance: PHENYTOIN
     Indication: CAROTID ARTERY THROMBOSIS
     Dosage: 400MG, DAILY (TAKE 4 CAPSULES)
     Route: 048

REACTIONS (6)
  - Off label use [Unknown]
  - Intentional product misuse [Unknown]
  - Drug dependence [Unknown]
  - Seizure [Unknown]
  - Product use in unapproved indication [Unknown]
  - Brain neoplasm [Unknown]
